FAERS Safety Report 9642204 (Version 1)
Quarter: 2013Q4

REPORT INFORMATION
  Report Type: Spontaneous
  Country: US (occurrence: US)
  Receive Date: 20131024
  Receipt Date: 20131024
  Transmission Date: 20140711
  Serious: No
  Sender: FDA-Public Use
  Company Number: US-B.I. PHARMACEUTICALS,INC./RIDGEFIELD-2013-BI-32478BP

PATIENT
  Age: 73 Year
  Sex: Male

DRUGS (7)
  1. COMBIVENT [Suspect]
     Indication: CHRONIC OBSTRUCTIVE PULMONARY DISEASE
     Dosage: STRENGTH: 20 MCG / 100 MCG;
     Route: 055
     Dates: start: 20131006
  2. DIOVAN [Concomitant]
     Indication: HYPERTENSION
     Dosage: 80 MG
     Route: 048
  3. KLOR [Concomitant]
     Dosage: 10 MEQ
     Route: 048
  4. VITAMIN D [Concomitant]
     Route: 048
  5. CALCIUM [Concomitant]
     Dosage: 500 MG
     Route: 048
  6. LEVOTHYROXINE [Concomitant]
     Indication: HYPOTHYROIDISM
     Dosage: 75 MCG
     Route: 048
  7. WARFARIN [Concomitant]
     Indication: AORTIC VALVE REPLACEMENT
     Route: 048

REACTIONS (1)
  - Vision blurred [Recovered/Resolved]
